FAERS Safety Report 25751324 (Version 1)
Quarter: 2025Q3

REPORT INFORMATION
  Report Type: Spontaneous
  Country: US (occurrence: None)
  Receive Date: 20250831
  Receipt Date: 20250831
  Transmission Date: 20251020
  Serious: Yes (unspecified)
  Sender: FDA-CTU
  Company Number: None

PATIENT
  Age: 24 Year
  Sex: Female
  Weight: 85.5 kg

DRUGS (1)
  1. PYRIDOXINE\TIRZEPATIDE [Suspect]
     Active Substance: PYRIDOXINE\TIRZEPATIDE
     Indication: Weight control
     Dates: start: 20250622, end: 20250814

REACTIONS (7)
  - Vomiting [None]
  - Diarrhoea [None]
  - Migraine [None]
  - Anxiety [None]
  - Blood sodium decreased [None]
  - Product communication issue [None]
  - Incorrect dose administered [None]
